FAERS Safety Report 8361737-5 (Version None)
Quarter: 2012Q2

REPORT INFORMATION
  Report Type: 
  Country: None (occurrence: None)
  Receive Date: 20120515
  Receipt Date: 20120510
  Transmission Date: 20120825
  Serious: Yes (Hospitalization)
  Sender: FDA-Public Use
  Company Number: US-GLAXOSMITHKLINE-A0897737A

PATIENT
  Age: 33 Year
  Sex: Female
  Weight: 115.9 kg

DRUGS (7)
  1. GLUCOPHAGE [Concomitant]
  2. CELEXA [Concomitant]
  3. PRILOSEC [Concomitant]
  4. AVANDIA [Suspect]
     Indication: DIABETES MELLITUS
     Dosage: 4MG PER DAY
     Route: 048
     Dates: start: 20050901
  5. REMERON [Concomitant]
  6. DEPO-PROVERA [Concomitant]
  7. GLUCOTROL XL [Concomitant]

REACTIONS (6)
  - CARDIAC FAILURE CONGESTIVE [None]
  - CORONARY ARTERY DISEASE [None]
  - ISCHAEMIC CARDIOMYOPATHY [None]
  - AMNESIA [None]
  - MYOCARDIAL INFARCTION [None]
  - CONGESTIVE CARDIOMYOPATHY [None]
